FAERS Safety Report 22333151 (Version 1)
Quarter: 2023Q2

REPORT INFORMATION
  Report Type: Report from Study
  Country: US (occurrence: US)
  Receive Date: 20230517
  Receipt Date: 20230517
  Transmission Date: 20230722
  Serious: Yes (Other)
  Sender: FDA-Public Use
  Company Number: US-MYLANLABS-2023M1050249

PATIENT
  Sex: Female
  Weight: 64.4 kg

DRUGS (5)
  1. SILDENAFIL [Suspect]
     Active Substance: SILDENAFIL
     Indication: Product used for unknown indication
     Dosage: 20 MILLIGRAM, TID (COUPLE OF DAYS)
     Route: 065
     Dates: start: 20230425
  2. TYVASO [Suspect]
     Active Substance: TREPROSTINIL
     Indication: Pulmonary arterial hypertension
     Dosage: 66 MICROGRAM, QID (11 BREATHS INHALED)
     Route: 055
  3. TYVASO [Suspect]
     Active Substance: TREPROSTINIL
     Dosage: 72 MICROGRAM, QID (12 BREATHS INHALED)
     Route: 055
  4. TYVASO [Suspect]
     Active Substance: TREPROSTINIL
     Dosage: UNK
     Route: 055
  5. OFEV [Concomitant]
     Active Substance: NINTEDANIB
     Dosage: UNK
     Route: 065

REACTIONS (11)
  - Glaucoma [Unknown]
  - Macular degeneration [Unknown]
  - Asthenia [Unknown]
  - Frustration tolerance decreased [Unknown]
  - Agitation [Unknown]
  - Localised oedema [Not Recovered/Not Resolved]
  - Dyspnoea exertional [Unknown]
  - Feeling abnormal [Unknown]
  - Ocular discomfort [Unknown]
  - Oedema peripheral [Not Recovered/Not Resolved]
  - Head discomfort [Unknown]
